FAERS Safety Report 6511735-9 (Version None)
Quarter: 2009Q4

REPORT INFORMATION
  Report Type: 
  Country: None (occurrence: None)
  Receive Date: 20091222
  Receipt Date: 20090331
  Transmission Date: 20100525
  Serious: No
  Sender: FDA-Public Use
  Company Number: US-ASTRAZENECA-2009UW08159

PATIENT
  Age: 61 Year
  Sex: Female
  Weight: 97.5 kg

DRUGS (6)
  1. CRESTOR [Suspect]
     Route: 048
  2. GLYBERIDE [Concomitant]
  3. METFORMIN HCL [Concomitant]
  4. LANTUS [Concomitant]
  5. LISINOPRIL [Concomitant]
     Route: 048
  6. PREVACID [Concomitant]

REACTIONS (1)
  - OEDEMA PERIPHERAL [None]
